FAERS Safety Report 14343050 (Version 1)
Quarter: 2018Q1

REPORT INFORMATION
  Report Type: Spontaneous
  Country: US (occurrence: US)
  Receive Date: 20180102
  Receipt Date: 20180102
  Transmission Date: 20180509
  Serious: Yes (Other)
  Sender: FDA-Public Use
  Company Number: US-EPIC PHARMA LLC-2017EPC02089

PATIENT
  Age: 65 Year
  Sex: Male
  Weight: 79.37 kg

DRUGS (4)
  1. NICARDIPINE HCL [Suspect]
     Active Substance: NICARDIPINE HYDROCHLORIDE
     Indication: HYPERTENSION
     Dosage: 20 MG, 1X/DAY
     Route: 048
     Dates: start: 20171213, end: 20171215
  2. SENSIPAR (AMGEN) [Concomitant]
  3. TORSEMIDE. [Concomitant]
     Active Substance: TORSEMIDE
  4. ALLOPURINOL. [Concomitant]
     Active Substance: ALLOPURINOL

REACTIONS (3)
  - Dyspnoea [Recovered/Resolved]
  - Drug effect incomplete [Not Recovered/Not Resolved]
  - Gait disturbance [Recovered/Resolved]

NARRATIVE: CASE EVENT DATE: 201712
